FAERS Safety Report 4952303-X (Version None)
Quarter: 2006Q1

REPORT INFORMATION
  Report Type: 
  Country: None (occurrence: None)
  Receive Date: 20060320
  Receipt Date: 20060314
  Transmission Date: 20060701
  Serious: Yes (Hospitalization)
  Sender: FDA-Public Use
  Company Number: 06H-163-0306286-00

PATIENT
  Age: 85 Year
  Sex: Female

DRUGS (1)
  1. HEPARIN SODIUM [Suspect]
     Indication: ANTICOAGULANT THERAPY
     Dosage: 11 CC/HR, INTRAVENOUS
     Route: 042
     Dates: start: 20060308

REACTIONS (5)
  - GENERAL PHYSICAL HEALTH DETERIORATION [None]
  - INCORRECT DRUG DOSAGE FORM ADMINISTERED [None]
  - MEDICATION ERROR [None]
  - PULMONARY EMBOLISM [None]
  - UNDERDOSE [None]
